FAERS Safety Report 7972851-8 (Version None)
Quarter: 2011Q4

REPORT INFORMATION
  Report Type: 
  Country: None (occurrence: None)
  Receive Date: 20111213
  Receipt Date: 20111207
  Transmission Date: 20120403
  Serious: Yes (Other)
  Sender: FDA-Public Use
  Company Number: US-ROCHE-1015574

PATIENT
  Sex: Female
  Weight: 103.51 kg

DRUGS (8)
  1. ALBUTEROL SULFATE [Concomitant]
  2. METROPOLOL COMP [Concomitant]
  3. ADVAIR DISKUS 100/50 [Concomitant]
  4. PROVENTIL-HFA [Concomitant]
  5. OMALIZUMAB [Suspect]
     Indication: ASTHMA
     Dosage: 2 DOSE FORM
     Route: 058
     Dates: start: 20110928, end: 20111013
  6. QVAR 40 [Concomitant]
  7. AVELOX [Concomitant]
  8. AZOR (UNITED STATES) [Concomitant]

REACTIONS (1)
  - ANAPHYLACTIC REACTION [None]
